FAERS Safety Report 9610693 (Version 1)
Quarter: 2013Q4

REPORT INFORMATION
  Report Type: Not Available
  Country: SE (occurrence: SE)
  Receive Date: 20131009
  Receipt Date: 20131009
  Transmission Date: 20140711
  Serious: Yes (Hospitalization)
  Sender: FDA-Public Use
  Company Number: SE-NAPPMUNDI-GBR-2013-0015869

PATIENT
  Age: 80 Year
  Sex: Male

DRUGS (2)
  1. OXYNORM [Suspect]
     Indication: PROCEDURAL PAIN
     Dosage: UNK
     Route: 065
     Dates: start: 20130620
  2. NORSPAN [Concomitant]
     Route: 062

REACTIONS (2)
  - Balance disorder [Recovered/Resolved]
  - Speech disorder [Recovered/Resolved]
